FAERS Safety Report 4752161-2 (Version None)
Quarter: 2005Q3

REPORT INFORMATION
  Report Type: 
  Country: None (occurrence: None)
  Receive Date: 20050825
  Receipt Date: 20050816
  Transmission Date: 20060218
  Serious: Yes (Hospitalization)
  Sender: FDA-Public Use
  Company Number: FR-JNJFOC-20050607362

PATIENT
  Age: 83 Year
  Sex: Female
  Weight: 95 kg

DRUGS (8)
  1. PEVARYL [Suspect]
     Indication: DERMATITIS
     Dosage: APPLIED LOCALLY THREE TIMES A DAY FOR ONE MONTH
     Route: 061
     Dates: start: 20050427, end: 20050516
  2. SINTROM [Concomitant]
  3. CIBADREX [Concomitant]
  4. CIBADREX [Concomitant]
  5. EUPRESSYL [Concomitant]
  6. APROVEL [Concomitant]
  7. LASIX [Concomitant]
  8. DAFLON [Concomitant]

REACTIONS (2)
  - HAEMATOMA [None]
  - PROTHROMBIN LEVEL DECREASED [None]
